FAERS Safety Report 10241717 (Version 1)
Quarter: 2014Q2

REPORT INFORMATION
  Report Type: Not Available
  Country: FR (occurrence: FR)
  Receive Date: 20140617
  Receipt Date: 20140617
  Transmission Date: 20141212
  Serious: Yes (Hospitalization)
  Sender: FDA-Public Use
  Company Number: FR-MUNDIPHARMA DS AND PHARMACOVIGILANCE-GBR-2014-0018691

PATIENT
  Age: 19 Year
  Sex: Male

DRUGS (3)
  1. OXYCONTIN LP 10 MG, COMPRIME PELLICULE A LIBERATION PROLONGEE [Suspect]
     Indication: PROCEDURAL PAIN
     Dosage: 10 MG, DAILY
     Route: 048
     Dates: start: 201404
  2. VANCOMYCINE [Suspect]
     Indication: PSEUDARTHROSIS
     Dosage: 500 MG, UNK
     Route: 042
     Dates: start: 20140424
  3. GENTAMICIN [Concomitant]
     Dosage: UNK

REACTIONS (1)
  - Hepatocellular injury [Recovered/Resolved]
